FAERS Safety Report 14962070 (Version 1)
Quarter: 2018Q2

REPORT INFORMATION
  Report Type: Spontaneous
  Country: GB (occurrence: GB)
  Receive Date: 20180601
  Receipt Date: 20180601
  Transmission Date: 20180711
  Serious: Yes (Death, Other)
  Sender: FDA-Public Use
  Company Number: GB-APOTEX-2018AP015213

PATIENT
  Age: 39 Year
  Sex: Female

DRUGS (4)
  1. PREDNISOLONE. [Suspect]
     Active Substance: PREDNISOLONE
     Indication: NEUROMYELITIS OPTICA SPECTRUM DISORDER
     Dosage: 10-15 MG, DAILY
     Route: 065
     Dates: start: 2004
  2. AZATHIOPRINE. [Suspect]
     Active Substance: AZATHIOPRINE
     Indication: NEUROMYELITIS OPTICA SPECTRUM DISORDER
     Dosage: UNK
     Route: 065
     Dates: start: 2004
  3. RITUXIMAB. [Suspect]
     Active Substance: RITUXIMAB
     Indication: NEUROMYELITIS OPTICA SPECTRUM DISORDER
     Dosage: 2 G, EIGHT MONTHS APART
     Route: 041
     Dates: start: 2015
  4. MYCOPHENOLATE [Suspect]
     Active Substance: MYCOPHENOLIC ACID
     Indication: NEUROMYELITIS OPTICA SPECTRUM DISORDER
     Dosage: UNK
     Route: 065
     Dates: start: 2014, end: 2015

REACTIONS (4)
  - Pneumonia [Fatal]
  - Drug effect incomplete [Unknown]
  - Secondary immunodeficiency [Fatal]
  - Adverse drug reaction [Unknown]

NARRATIVE: CASE EVENT DATE: 2015
